FAERS Safety Report 9447550 (Version 1)
Quarter: 2013Q3

REPORT INFORMATION
  Report Type: Report from Study
  Country: US (occurrence: US)
  Receive Date: 20130808
  Receipt Date: 20130808
  Transmission Date: 20140515
  Serious: Yes (Hospitalization)
  Sender: FDA-Public Use
  Company Number: US-JNJFOC-20130718939

PATIENT
  Age: 20 Year
  Sex: Male
  Weight: 75.8 kg

DRUGS (5)
  1. REMICADE [Suspect]
     Indication: INFLAMMATORY BOWEL DISEASE
     Route: 042
     Dates: start: 20060411
  2. HUMIRA [Concomitant]
     Route: 065
     Dates: start: 20101019, end: 201206
  3. PREDNISONE [Concomitant]
     Route: 065
     Dates: start: 20130705
  4. 5-ASA [Concomitant]
     Route: 048
  5. HYDROCORTISONE [Concomitant]
     Route: 065

REACTIONS (1)
  - Inflammatory bowel disease [Recovered/Resolved]
